FAERS Safety Report 9423461 (Version 4)
Quarter: 2013Q4

REPORT INFORMATION
  Report Type: Report from Study
  Country: IN (occurrence: IN)
  Receive Date: 20130726
  Receipt Date: 20131022
  Transmission Date: 20140711
  Serious: Yes (Life-Threatening, Hospitalization)
  Sender: FDA-Public Use
  Company Number: IN-B.I. PHARMACEUTICALS,INC./RIDGEFIELD-2013-RU-00755BP

PATIENT
  Age: 54 Year
  Sex: Male
  Weight: 90.7 kg

DRUGS (9)
  1. BI 1356 [Suspect]
     Indication: TYPE 2 DIABETES MELLITUS
     Dates: start: 20120721, end: 20130723
  2. TAB CARDACE H 2.5 MG [Concomitant]
     Indication: MYOCARDIAL INFARCTION
     Dosage: 2.5 MG
     Route: 048
     Dates: end: 20130723
  3. FIBATOR 10/145 MG [Concomitant]
     Indication: DYSLIPIDAEMIA
     Route: 048
     Dates: start: 20121025, end: 20130723
  4. ECOSPRIN AV 10/75 MG [Concomitant]
     Indication: DYSLIPIDAEMIA
     Route: 048
     Dates: start: 20121025, end: 20130723
  5. INJ INSULATARD [Concomitant]
     Indication: TYPE 2 DIABETES MELLITUS
     Dosage: 10 U
     Route: 058
     Dates: start: 20130723, end: 20130725
  6. INJ ACTRAPID [Concomitant]
     Indication: TYPE 2 DIABETES MELLITUS
     Dosage: 30 U
     Route: 058
     Dates: start: 20130723, end: 20130726
  7. INJ INSULATARD [Concomitant]
     Indication: TYPE 2 DIABETES MELLITUS
     Dosage: 20 U
     Route: 058
     Dates: start: 20130725, end: 20130731
  8. INJ ACTRAPID [Concomitant]
     Indication: TYPE 2 DIABETES MELLITUS
     Dosage: 45 U
     Route: 058
     Dates: start: 20130727
  9. INJ INSULATARD [Concomitant]
     Indication: TYPE 2 DIABETES MELLITUS
     Dosage: 10 U
     Route: 058
     Dates: start: 20130801

REACTIONS (6)
  - Ventricular tachycardia [Recovered/Resolved]
  - Alanine aminotransferase increased [Recovered/Resolved]
  - Aspartate aminotransferase increased [Recovered/Resolved]
  - Troponin T increased [Recovered/Resolved]
  - Eructation [Recovered/Resolved]
  - Chest pain [Recovered/Resolved]
